FAERS Safety Report 17376967 (Version 1)
Quarter: 2020Q1

REPORT INFORMATION
  Report Type: Spontaneous
  Country: US (occurrence: US)
  Receive Date: 20200205
  Receipt Date: 20200205
  Transmission Date: 20200409
  Serious: No
  Sender: FDA-Public Use
  Company Number: None

PATIENT
  Age: 48 Year
  Sex: Female
  Weight: 69.75 kg

DRUGS (1)
  1. SULFAMETHOXAZOLE-TMP DS [Suspect]
     Active Substance: SULFAMETHOXAZOLE\TRIMETHOPRIM
     Indication: URINARY TRACT INFECTION
     Dosage: ?          OTHER STRENGTH:1 PILL TWICE A DAY;QUANTITY:1 TABLET(S);?
     Route: 048
     Dates: start: 20200204, end: 20200205

REACTIONS (1)
  - Headache [None]

NARRATIVE: CASE EVENT DATE: 20200205
